FAERS Safety Report 9258133 (Version 1)
Quarter: 2013Q1

REPORT INFORMATION
  Report Type: Spontaneous
  Country: US (occurrence: None)
  Receive Date: 20121212
  Receipt Date: 20121212
  Transmission Date: 20140127
  Serious: No
  Sender: FDA-Public Use
  Company Number: 1209USA003085

PATIENT
  Age: 45 Year
  Sex: Male
  Weight: 87.5 kg

DRUGS (3)
  1. VICTRELIS [Suspect]
     Route: 048
     Dates: start: 020106
  2. RIBAVIRIN (RIBAVIRIN) [Suspect]
     Route: 048
  3. PEGASYS [Suspect]
     Route: 058

REACTIONS (1)
  - Hepatitis C [None]
